FAERS Safety Report 6140946-X (Version None)
Quarter: 2009Q2

REPORT INFORMATION
  Report Type: 
  Country: None (occurrence: None)
  Receive Date: 20090402
  Receipt Date: 20090326
  Transmission Date: 20091009
  Serious: Yes (Hospitalization)
  Sender: FDA-Public Use
  Company Number: FR-BAXTER-2009BH004796

PATIENT

DRUGS (4)
  1. HOLOXAN BAXTER [Suspect]
     Indication: SARCOMA
     Dosage: DOSE UNIT:GRAMS PER METERS SQUARED
     Route: 042
     Dates: start: 20000101
  2. CISPLATIN [Suspect]
     Indication: SARCOMA
     Route: 042
     Dates: start: 20000101
  3. UROMITEXAN BAXTER [Suspect]
     Indication: PROPHYLAXIS
     Route: 065
     Dates: start: 20000101
  4. ADRIAMYCIN RDF [Suspect]
     Indication: SARCOMA
     Route: 042
     Dates: start: 20000101

REACTIONS (1)
  - RENAL FAILURE [None]
